FAERS Safety Report 5490417-9 (Version None)
Quarter: 2007Q4

REPORT INFORMATION
  Report Type: 
  Country: None (occurrence: None)
  Receive Date: 20071019
  Receipt Date: 20071009
  Transmission Date: 20080405
  Serious: Yes (Hospitalization, Other)
  Sender: FDA-Public Use
  Company Number: PHFR2007GB02964

PATIENT
  Age: 39 Year
  Sex: Male

DRUGS (1)
  1. CLOZARIL [Suspect]
     Indication: SCHIZOPHRENIA
     Route: 048
     Dates: start: 20070823

REACTIONS (5)
  - CARDIOMEGALY [None]
  - CIRCULATORY COLLAPSE [None]
  - ELECTROCARDIOGRAM T WAVE AMPLITUDE DECREASED [None]
  - PERICARDIAL EFFUSION [None]
  - TACHYCARDIA [None]
